FAERS Safety Report 13761515 (Version 3)
Quarter: 2017Q4

REPORT INFORMATION
  Report Type: Report from Study
  Country: AU (occurrence: AU)
  Receive Date: 20170717
  Receipt Date: 20171215
  Transmission Date: 20180320
  Serious: Yes (Hospitalization, Other)
  Sender: FDA-Public Use
  Company Number: AU-REGENERON PHARMACEUTICALS, INC.-2017-18553

PATIENT

DRUGS (1)
  1. EYLEA [Suspect]
     Active Substance: AFLIBERCEPT
     Indication: NEOVASCULAR AGE-RELATED MACULAR DEGENERATION
     Dosage: 40 MG/ML, UNK
     Route: 031
     Dates: start: 20160501, end: 201702

REACTIONS (11)
  - Eyelid ptosis [Not Recovered/Not Resolved]
  - Gait disturbance [Unknown]
  - Blindness transient [Unknown]
  - Eye pruritus [Unknown]
  - Eye pain [Unknown]
  - Ocular hyperaemia [Unknown]
  - Spondylitis [Not Recovered/Not Resolved]
  - Device dislocation [Recovering/Resolving]
  - Injection site irritation [Unknown]
  - Injection site pain [Recovered/Resolved]
  - Injection site discomfort [Unknown]

NARRATIVE: CASE EVENT DATE: 20160501
